FAERS Safety Report 4676726-1 (Version None)
Quarter: 2005Q2

REPORT INFORMATION
  Report Type: 
  Country: None (occurrence: None)
  Receive Date: 20050527
  Receipt Date: 20050520
  Transmission Date: 20051028
  Serious: Yes (Hospitalization)
  Sender: FDA-Public Use
  Company Number: US-ABBOTT-05P-163-0300957-00

PATIENT
  Sex: Female
  Weight: 86.26 kg

DRUGS (9)
  1. HUMIRA [Suspect]
     Indication: RHEUMATOID ARTHRITIS
     Route: 058
  2. CO-DIOVAN [Concomitant]
     Indication: BLOOD PRESSURE
     Dosage: 160/25
     Route: 048
  3. CALCIUM GLUCONATE [Concomitant]
     Indication: ARTHRITIS
     Route: 048
  4. LANSOPRAZOLE [Concomitant]
     Indication: STOMACH DISCOMFORT
     Route: 048
  5. FOLIC ACID [Concomitant]
     Indication: DRUG USE FOR UNKNOWN INDICATION
     Route: 048
  6. PREDNISONE [Concomitant]
     Indication: RHEUMATOID ARTHRITIS
     Route: 048
  7. METHOTREXATE SODIUM [Concomitant]
     Indication: RHEUMATOID ARTHRITIS
     Route: 048
  8. RISEDRONATE SODIUM [Concomitant]
     Indication: RHEUMATOID ARTHRITIS
     Dosage: ON SUNDAY
     Route: 048
  9. ACETYLSALICYLIC ACID [Concomitant]
     Indication: DRUG USE FOR UNKNOWN INDICATION
     Route: 048

REACTIONS (2)
  - ARTHRALGIA [None]
  - ARTHRITIS [None]
